FAERS Safety Report 12729378 (Version 5)
Quarter: 2016Q4

REPORT INFORMATION
  Report Type: Spontaneous
  Country: US (occurrence: US)
  Receive Date: 20160909
  Receipt Date: 20161028
  Transmission Date: 20170207
  Serious: Yes (Hospitalization, Other)
  Sender: FDA-Public Use
  Company Number: US-JNJFOC-20160902697

PATIENT
  Age: 81 Year
  Sex: Male
  Weight: 84.37 kg

DRUGS (8)
  1. SOTALOL. [Concomitant]
     Active Substance: SOTALOL
     Indication: ARRHYTHMIA PROPHYLAXIS
     Route: 065
  2. MAGNESIUM [Concomitant]
     Active Substance: MAGNESIUM
     Route: 065
  3. COQ10 [Concomitant]
     Active Substance: UBIDECARENONE
     Route: 065
  4. XARELTO [Suspect]
     Active Substance: RIVAROXABAN
     Indication: ANTICOAGULANT THERAPY
     Dosage: 2012 OR 2013
     Route: 048
     Dates: end: 20160831
  5. SOTALOL. [Concomitant]
     Active Substance: SOTALOL
     Indication: ANTICOAGULANT THERAPY
     Route: 065
  6. POTASSIUM [Concomitant]
     Active Substance: POTASSIUM
     Route: 065
  7. RESVERATROL [Concomitant]
     Active Substance: RESVERATROL
     Route: 065
  8. METFORMIN [Concomitant]
     Active Substance: METFORMIN HYDROCHLORIDE
     Indication: TYPE 2 DIABETES MELLITUS
     Route: 065
     Dates: end: 201608

REACTIONS (5)
  - Obstruction [Unknown]
  - Thrombosis [Unknown]
  - Peripheral artery thrombosis [Recovered/Resolved]
  - Embolism [Recovered/Resolved]
  - Transient ischaemic attack [Unknown]

NARRATIVE: CASE EVENT DATE: 201608
